FAERS Safety Report 5930363-7 (Version None)
Quarter: 2008Q4

REPORT INFORMATION
  Report Type: 
  Country: None (occurrence: None)
  Receive Date: 20081023
  Receipt Date: 20081008
  Transmission Date: 20090506
  Serious: Yes (Hospitalization)
  Sender: FDA-Public Use
  Company Number: 2008S1018220

PATIENT
  Age: 22 Year
  Sex: Male

DRUGS (13)
  1. CLOZAPINE [Suspect]
     Indication: PSYCHOTIC DISORDER
     Dosage: 7 DF;DAILY;ORAL
     Route: 048
     Dates: start: 20070701, end: 20080905
  2. LOXAPAC (LOXAPINE) (25 MG) [Suspect]
     Indication: PSYCHOTIC DISORDER
     Dosage: 225 MG;DAILY;ORAL
     Route: 048
     Dates: start: 20070101
  3. LORAZEPAM [Suspect]
     Indication: ANXIETY
     Dosage: 2.5 MG;DAILY;ORAL
     Route: 048
     Dates: start: 20070101
  4. LEPTICUR (TROPATEPINE HYDROCHLORIDE) (10 MG) [Suspect]
     Indication: PARKINSON'S DISEASE
     Dosage: 10 MG;ORALY;ORAL
     Route: 048
     Dates: start: 20070101
  5. NOZINAN [Concomitant]
  6. FLUANXOL /00109702/ [Concomitant]
  7. MODECATE [Concomitant]
  8. TERCIAN [Concomitant]
  9. HALDOL [Concomitant]
  10. NEULEPTIL /00038401/ [Concomitant]
  11. LEPONEX [Concomitant]
  12. TEGRETOL [Concomitant]
  13. PARKINANE [Concomitant]

REACTIONS (2)
  - PERITONITIS [None]
  - SEPTIC SHOCK [None]
